FAERS Safety Report 25182287 (Version 1)
Quarter: 2025Q2

REPORT INFORMATION
  Report Type: Spontaneous
  Country: US (occurrence: US)
  Receive Date: 20250410
  Receipt Date: 20250410
  Transmission Date: 20250717
  Serious: No
  Sender: KINIKSA PHARMACEUTICALS
  Company Number: US-Kiniksa Pharmaceuticals Ltd.-2024KPU000999

PATIENT
  Age: 57 Year

DRUGS (6)
  1. ARCALYST [Suspect]
     Active Substance: RILONACEPT
     Indication: Pericarditis
     Route: 058
     Dates: start: 20220523
  2. ARCALYST [Suspect]
     Active Substance: RILONACEPT
     Indication: Pericarditis
     Dosage: 160 MG ONCE WEEK
     Route: 058
     Dates: start: 20220530
  3. ARCALYST [Suspect]
     Active Substance: RILONACEPT
     Dosage: 2 ML WEEKLY
     Route: 058
     Dates: start: 202406
  4. COLCHICINE [Concomitant]
     Active Substance: COLCHICINE
     Indication: Pericarditis
  5. METOPROLOL [Concomitant]
     Active Substance: METOPROLOL
  6. LOSARTAN [Concomitant]
     Active Substance: LOSARTAN

REACTIONS (8)
  - Therapeutic response decreased [Not Recovered/Not Resolved]
  - Drug tolerance decreased [Unknown]
  - Blood pressure increased [Recovered/Resolved]
  - Dyspnoea [Unknown]
  - Product dose omission issue [Unknown]
  - Product dose omission issue [Unknown]
  - Hypokinesia [Unknown]
  - Back pain [Unknown]

NARRATIVE: CASE EVENT DATE: 20240101
